FAERS Safety Report 25628236 (Version 2)
Quarter: 2025Q3

REPORT INFORMATION
  Report Type: Spontaneous
  Country: US (occurrence: US)
  Receive Date: 20250731
  Receipt Date: 20250804
  Transmission Date: 20251021
  Serious: Yes (Other)
  Sender: EISAI
  Company Number: US-Eisai-EC-2025-193450

PATIENT
  Age: 75 Year
  Sex: Female
  Weight: 85 kg

DRUGS (1)
  1. LEQEMBI [Suspect]
     Active Substance: LECANEMAB-IRMB
     Indication: Dementia Alzheimer^s type
     Dates: start: 20250715

REACTIONS (7)
  - Cough [Unknown]
  - Pruritus [Unknown]
  - Chest discomfort [Unknown]
  - Infusion related reaction [Recovering/Resolving]
  - Chest pain [Recovered/Resolved]
  - Dyspnoea [Recovered/Resolved]
  - Headache [Unknown]

NARRATIVE: CASE EVENT DATE: 20250715
